FAERS Safety Report 9486989 (Version 1)
Quarter: 2013Q3

REPORT INFORMATION
  Report Type: Spontaneous
  Country: US (occurrence: US)
  Receive Date: 20130829
  Receipt Date: 20130829
  Transmission Date: 20140515
  Serious: Yes (Other)
  Sender: FDA-Public Use
  Company Number: US-BAYER-2013-104460

PATIENT
  Age: 59 Year
  Sex: Female

DRUGS (10)
  1. BETASERON [Suspect]
     Indication: MULTIPLE SCLEROSIS
     Dosage: 0.25 MG, QOD
     Route: 058
  2. AMLODIPINE [Concomitant]
     Dosage: UNK
  3. NEURONTIN [Concomitant]
  4. IMIPRAMINE HCL [Concomitant]
  5. LOSARTAN POTASSIUM [Concomitant]
  6. AMPYRA [Concomitant]
  7. VITAMIN D [Concomitant]
  8. PROVIGIL [Concomitant]
  9. VESICARE [Concomitant]
  10. TYLENOL [PARACETAMOL] [Concomitant]

REACTIONS (2)
  - Multiple sclerosis [Unknown]
  - Drug ineffective [Unknown]
